FAERS Safety Report 11862754 (Version 1)
Quarter: 2015Q4

REPORT INFORMATION
  Report Type: Spontaneous
  Country: CA (occurrence: CA)
  Receive Date: 20151223
  Receipt Date: 20151223
  Transmission Date: 20160305
  Serious: Yes (Other)
  Sender: FDA-Public Use
  Company Number: CA-ASTRAZENECA-2015SF27520

PATIENT
  Age: 69 Year
  Sex: Male
  Weight: 116 kg

DRUGS (9)
  1. GLYBURIDE. [Concomitant]
     Active Substance: GLYBURIDE
  2. INVOKANA [Concomitant]
     Active Substance: CANAGLIFLOZIN
  3. BISOPROLOL [Concomitant]
     Active Substance: BISOPROLOL
  4. PANTOPRAZOLE [Concomitant]
     Active Substance: PANTOPRAZOLE SODIUM
  5. TELMISARTAN. [Concomitant]
     Active Substance: TELMISARTAN
  6. BRILINTA [Suspect]
     Active Substance: TICAGRELOR
     Indication: PLATELET AGGREGATION INHIBITION
     Route: 048
  7. ROSUVASTATIN [Concomitant]
     Active Substance: ROSUVASTATIN
  8. JANUMET [Concomitant]
     Active Substance: METFORMIN HYDROCHLORIDE\SITAGLIPTIN PHOSPHATE
  9. ASA [Concomitant]
     Active Substance: ASPIRIN

REACTIONS (3)
  - Cough [Unknown]
  - Chest pain [Unknown]
  - Dyspnoea [Unknown]
